FAERS Safety Report 5301465-3 (Version None)
Quarter: 2007Q2

REPORT INFORMATION
  Report Type: 
  Country: None (occurrence: None)
  Receive Date: 20070418
  Receipt Date: 20070410
  Transmission Date: 20071010
  Serious: Yes (Hospitalization, Other)
  Sender: FDA-Public Use
  Company Number: US-PFIZER INC-2006086433

PATIENT
  Sex: Male
  Weight: 74.8 kg

DRUGS (2)
  1. CELEBREX [Suspect]
     Indication: COLONIC POLYP
  2. CELEBREX [Suspect]
     Indication: ARTHRITIS

REACTIONS (3)
  - MYOCARDIAL INFARCTION [None]
  - MYOCARDIAL ISCHAEMIA [None]
  - RENAL DISORDER [None]
